FAERS Safety Report 6795325-9 (Version None)
Quarter: 2010Q2

REPORT INFORMATION
  Report Type: 
  Country: None (occurrence: None)
  Receive Date: 20100624
  Receipt Date: 20100624
  Transmission Date: 20101027
  Serious: Yes (Other)
  Sender: FDA-Public Use
  Company Number: None

PATIENT
  Sex: Female
  Weight: 57.6068 kg

DRUGS (2)
  1. RYZOLT [Suspect]
     Indication: MUSCULOSKELETAL PAIN
     Dosage: 1 TABLET DAILY MOUTH
     Route: 048
     Dates: start: 20100605
  2. RYZOLT [Suspect]
     Indication: PAIN IN EXTREMITY
     Dosage: 1 TABLET DAILY MOUTH
     Route: 048
     Dates: start: 20100605

REACTIONS (9)
  - CHEST DISCOMFORT [None]
  - FATIGUE [None]
  - FEELING ABNORMAL [None]
  - HYPERHIDROSIS [None]
  - INSOMNIA [None]
  - NAUSEA [None]
  - OESOPHAGEAL DISORDER [None]
  - OESOPHAGEAL PAIN [None]
  - TREMOR [None]
